FAERS Safety Report 8160118-7 (Version None)
Quarter: 2012Q1

REPORT INFORMATION
  Report Type: 
  Country: None (occurrence: None)
  Receive Date: 20120223
  Receipt Date: 20120215
  Transmission Date: 20120608
  Serious: Yes (Other)
  Sender: FDA-Public Use
  Company Number: IE-GILEAD-2012-0050792

PATIENT
  Sex: Male

DRUGS (1)
  1. RANOLAZINE [Suspect]
     Indication: ANGINA PECTORIS
     Dosage: UNK
     Route: 048
     Dates: start: 20111201, end: 20111201

REACTIONS (3)
  - RASH MACULAR [None]
  - OEDEMA MUCOSAL [None]
  - LIP SWELLING [None]
